FAERS Safety Report 8426761-2 (Version None)
Quarter: 2012Q2

REPORT INFORMATION
  Report Type: 
  Country: None (occurrence: None)
  Receive Date: 20120323
  Receipt Date: 20110427
  Transmission Date: 20120825
  Serious: Yes (Hospitalization)
  Sender: FDA-Public Use
  Company Number: 163-21880-11043642

PATIENT
  Age: 69 Year
  Sex: Female
  Weight: 92.4884 kg

DRUGS (4)
  1. DEXAMETHASONE [Concomitant]
  2. BETAPACE [Concomitant]
  3. SYNTHROID [Concomitant]
  4. REVLIMID [Suspect]
     Indication: MULTIPLE MYELOMA
     Dosage: 15 MG, QD X 21D, PO
     Route: 048
     Dates: start: 20110110, end: 20110331

REACTIONS (1)
  - THROMBOSIS [None]
